FAERS Safety Report 15635297 (Version 3)
Quarter: 2022Q1

REPORT INFORMATION
  Report Type: Spontaneous
  Country: TN (occurrence: TN)
  Receive Date: 20181120
  Receipt Date: 20220111
  Transmission Date: 20220423
  Serious: Yes (Other)
  Sender: FDA-Public Use
  Company Number: TN-MLMSERVICE-20181101-1459288-1

PATIENT
  Age: 60 Year
  Sex: Female

DRUGS (3)
  1. ATORVASTATIN [Suspect]
     Active Substance: ATORVASTATIN
     Indication: Hypercholesterolaemia
     Dates: start: 201910, end: 201910
  2. ASPIRIN [Concomitant]
     Active Substance: ASPIRIN
     Indication: Hypercholesterolaemia
     Dates: start: 201910
  3. FAMOTIDINE [Concomitant]
     Active Substance: FAMOTIDINE
     Indication: Hypercholesterolaemia
     Dates: start: 201910

REACTIONS (3)
  - Angioedema [Recovered/Resolved]
  - Type I hypersensitivity [Recovered/Resolved]
  - Hereditary angioedema with C1 esterase inhibitor deficiency [Recovered/Resolved]

NARRATIVE: CASE EVENT DATE: 20191001
